FAERS Safety Report 5402403-5 (Version None)
Quarter: 2007Q3

REPORT INFORMATION
  Report Type: 
  Country: None (occurrence: None)
  Receive Date: 20070730
  Receipt Date: 20070730
  Transmission Date: 20080115
  Serious: Yes (Hospitalization)
  Sender: FDA-Public Use
  Company Number: None

PATIENT
  Sex: Male
  Weight: 79.3795 kg

DRUGS (1)
  1. CIPRO [Suspect]
     Indication: STAPHYLOCOCCAL INFECTION
     Dosage: 500 MG TABLET  TWICE PER DAY  PO
     Route: 048

REACTIONS (5)
  - CHILLS [None]
  - DRUG INEFFECTIVE [None]
  - PHARMACEUTICAL PRODUCT COMPLAINT [None]
  - POOR QUALITY DRUG ADMINISTERED [None]
  - PYREXIA [None]
